FAERS Safety Report 9628354 (Version 4)
Quarter: 2017Q4

REPORT INFORMATION
  Report Type: Report from Study
  Country: FR (occurrence: FR)
  Receive Date: 20131017
  Receipt Date: 20171213
  Transmission Date: 20180321
  Serious: Yes (Death, Hospitalization, Other)
  Sender: FDA-Public Use
  Company Number: FR-ALEXION PHARMACEUTICALS INC.-A201302561

PATIENT
  Age: 81 Year
  Sex: Female

DRUGS (6)
  1. SOLIRIS [Suspect]
     Active Substance: ECULIZUMAB
     Indication: HAEMOLYTIC URAEMIC SYNDROME
     Dosage: 900 MG, QW
     Route: 042
     Dates: start: 20130809, end: 20130830
  2. IMIPENEM/CILASTATINE [Suspect]
     Active Substance: CILASTATIN SODIUM\IMIPENEM
     Indication: INFECTION
     Dosage: UNK
     Route: 065
     Dates: start: 20130805
  3. SOLIRIS [Suspect]
     Active Substance: ECULIZUMAB
     Indication: OFF LABEL USE
  4. SOLIRIS [Suspect]
     Active Substance: ECULIZUMAB
     Indication: ESCHERICHIA TEST POSITIVE
  5. FLUCONAZOLE ARROW [Suspect]
     Active Substance: FLUCONAZOLE
     Indication: FUNGAL INFECTION
     Dosage: UNK
     Route: 065
     Dates: start: 20130805
  6. VFEND [Suspect]
     Active Substance: VORICONAZOLE
     Indication: BRONCHOPULMONARY ASPERGILLOSIS
     Dosage: 300 MG, QD
     Route: 065
     Dates: start: 20130902

REACTIONS (8)
  - Nervous system disorder [Fatal]
  - Cardiac arrest [Fatal]
  - Off label use [Unknown]
  - Tonic convulsion [Fatal]
  - Cholestasis [Unknown]
  - Bronchopulmonary aspergillosis [Unknown]
  - Thrombotic microangiopathy [Unknown]
  - Hemiplegia [Fatal]

NARRATIVE: CASE EVENT DATE: 20130812
